FAERS Safety Report 8805547 (Version 3)
Quarter: 2015Q2

REPORT INFORMATION
  Report Type: Report from Study
  Country: US (occurrence: US)
  Receive Date: 20120924
  Receipt Date: 20150413
  Transmission Date: 20150821
  Serious: Yes (Death)
  Sender: FDA-Public Use
  Company Number: US-ROCHE-CID000000002102837

PATIENT
  Sex: Male

DRUGS (16)
  1. TAXOTERE [Suspect]
     Active Substance: DOCETAXEL
     Indication: PROSTATE CANCER
     Route: 042
  2. CARBOPLATIN. [Concomitant]
     Active Substance: CARBOPLATIN
     Indication: PROSTATE CANCER
     Route: 042
  3. DECADRON [Concomitant]
     Active Substance: DEXAMETHASONE
     Route: 042
  4. LOVENOX [Concomitant]
     Active Substance: ENOXAPARIN SODIUM
     Route: 058
  5. AVASTIN [Suspect]
     Active Substance: BEVACIZUMAB
     Indication: BONE CANCER
  6. TYLENOL [Concomitant]
     Active Substance: ACETAMINOPHEN
     Route: 048
  7. ALOXI [Concomitant]
     Active Substance: PALONOSETRON HYDROCHLORIDE
     Route: 042
  8. PEPCID [Concomitant]
     Active Substance: FAMOTIDINE
     Route: 042
  9. BACTRIM [Concomitant]
     Active Substance: SULFAMETHOXAZOLE\TRIMETHOPRIM
     Route: 065
  10. AVASTIN [Suspect]
     Active Substance: BEVACIZUMAB
     Indication: PROSTATE CANCER
     Route: 042
  11. EMCYT [Concomitant]
     Active Substance: ESTRAMUSTINE PHOSPHATE SODIUM
     Indication: PROSTATE CANCER
     Dosage: 2 PILLS
     Route: 048
  12. THALIDOMIDE [Concomitant]
     Active Substance: THALIDOMIDE
     Route: 048
  13. AMOXICILLIN. [Concomitant]
     Active Substance: AMOXICILLIN
  14. CEPHALEXIN. [Concomitant]
     Active Substance: CEPHALEXIN
  15. AVASTIN [Suspect]
     Active Substance: BEVACIZUMAB
     Indication: BONE CANCER
  16. LEUKINE [Concomitant]
     Active Substance: SARGRAMOSTIM
     Route: 058

REACTIONS (13)
  - Diarrhoea [Unknown]
  - Cough [Unknown]
  - Musculoskeletal pain [Unknown]
  - Rash pruritic [Unknown]
  - Death [Fatal]
  - Stomatitis [Unknown]
  - Nausea [Unknown]
  - Skin irritation [Unknown]
  - Anaemia [Unknown]
  - Fatigue [Unknown]
  - Sinus disorder [Unknown]
  - Asthenia [Unknown]
  - Muscle spasms [Unknown]
